FAERS Safety Report 5076258-5 (Version None)
Quarter: 2006Q3

REPORT INFORMATION
  Report Type: 
  Country: None (occurrence: None)
  Receive Date: 20060807
  Receipt Date: 20060727
  Transmission Date: 20061208
  Serious: Yes (Other)
  Sender: FDA-Public Use
  Company Number: 2006092940

PATIENT
  Sex: Female

DRUGS (1)
  1. FRAGMIN [Suspect]
     Indication: DRUG USE FOR UNKNOWN INDICATION
     Dosage: (5000 I.U.)

REACTIONS (2)
  - INFLAMMATION [None]
  - PLATELET COUNT INCREASED [None]
